FAERS Safety Report 7461139-X (Version None)
Quarter: 2011Q2

REPORT INFORMATION
  Report Type: 
  Country: None (occurrence: None)
  Receive Date: 20110505
  Receipt Date: 20101015
  Transmission Date: 20111010
  Serious: No
  Sender: FDA-Public Use
  Company Number: US-AMGEN-USASP2010000508

PATIENT
  Age: 29 Year
  Sex: Male

DRUGS (2)
  1. INFLUENZA [Concomitant]
  2. ENBREL [Suspect]
     Indication: ANKYLOSING SPONDYLITIS
     Dates: start: 20100603

REACTIONS (3)
  - CONFUSIONAL STATE [None]
  - VERTIGO [None]
  - DISORIENTATION [None]
